FAERS Safety Report 8320423-8 (Version None)
Quarter: 2012Q2

REPORT INFORMATION
  Report Type: 
  Country: None (occurrence: None)
  Receive Date: 20120426
  Receipt Date: 20120426
  Transmission Date: 20120825
  Serious: No
  Sender: FDA-Public Use
  Company Number: None

PATIENT
  Sex: Male
  Weight: 78.0187 kg

DRUGS (1)
  1. FOSAMAX [Suspect]
     Indication: OSTEOPOROSIS
     Dosage: 1-TAB ONCE A WEEK

REACTIONS (6)
  - BACK PAIN [None]
  - ARTHRALGIA [None]
  - MUSCLE SPASMS [None]
  - ABDOMINAL DISTENSION [None]
  - GROIN PAIN [None]
  - MYALGIA [None]
